FAERS Safety Report 19265955 (Version 1)
Quarter: 2021Q2

REPORT INFORMATION
  Report Type: Other
  Country: CA (occurrence: CA)
  Receive Date: 20210518
  Receipt Date: 20210518
  Transmission Date: 20210717
  Serious: Yes (Other)
  Sender: FDA-Public Use
  Company Number: CA-CELLTRION INC.-2021CA006500

PATIENT

DRUGS (6)
  1. RITUXIMAB (UNKNOWN) [Suspect]
     Active Substance: RITUXIMAB
     Indication: PRODUCT USED FOR UNKNOWN INDICATION
     Route: 065
  2. ACETAMINOPHEN;CODEINE PHOSPHATE [Concomitant]
     Active Substance: ACETAMINOPHEN\CODEINE PHOSPHATE
  3. DESOXIMETASONE. [Concomitant]
     Active Substance: DESOXIMETASONE
     Route: 065
  4. CELEBREX [Concomitant]
     Active Substance: CELECOXIB
     Indication: RHEUMATOID ARTHRITIS
  5. PREDNISONE. [Concomitant]
     Active Substance: PREDNISONE
     Indication: RHEUMATOID ARTHRITIS
     Dosage: 5 MG, 2 EVERY 1 DAY
     Route: 048
  6. ENBREL [Suspect]
     Active Substance: ETANERCEPT
     Indication: RHEUMATOID ARTHRITIS
     Route: 065

REACTIONS (5)
  - Bursitis [Not Recovered/Not Resolved]
  - Malaise [Not Recovered/Not Resolved]
  - Tendonitis [Not Recovered/Not Resolved]
  - Drug ineffective [Not Recovered/Not Resolved]
  - Off label use [Not Recovered/Not Resolved]
